FAERS Safety Report 9695759 (Version 3)
Quarter: 2013Q4

REPORT INFORMATION
  Report Type: Spontaneous
  Country: ES (occurrence: ES)
  Receive Date: 20131119
  Receipt Date: 20131125
  Transmission Date: 20140711
  Serious: Yes (Life-Threatening, Hospitalization)
  Sender: FDA-Public Use
  Company Number: ES-PFIZER INC-2013327315

PATIENT
  Age: 80 Year
  Sex: Female

DRUGS (4)
  1. AMLODIPINE BESILATE [Suspect]
     Indication: CARDIAC FAILURE CONGESTIVE
     Dosage: 5 MG, 1X/DAY
     Route: 048
  2. CYCLADOL [Suspect]
     Indication: OSTEOARTHRITIS
     Dosage: 20 MG, 1X/DAY
     Route: 048
     Dates: start: 19970510, end: 19970530
  3. HIGROTONA [Concomitant]
     Indication: CARDIAC FAILURE CONGESTIVE
     Dosage: 150 MG, UNK
     Route: 048
  4. TRYPTIZOL [Concomitant]
     Indication: DEPRESSION
     Dosage: 75 MG, 1X/DAY
     Route: 048

REACTIONS (1)
  - Melaena [Recovered/Resolved]
